FAERS Safety Report 5688273-9 (Version None)
Quarter: 2008Q1

REPORT INFORMATION
  Report Type: 
  Country: None (occurrence: None)
  Receive Date: 20080328
  Receipt Date: 20080328
  Transmission Date: 20080703
  Serious: Yes (Other)
  Sender: FDA-Public Use
  Company Number: None

PATIENT
  Age: 43 Year
  Weight: 65.7716 kg

DRUGS (2)
  1. MEPRON [Suspect]
     Indication: PARASITE BLOOD TEST POSITIVE
     Dosage: 1 TEASPOON 2TIMES PER DAY PO
     Route: 048
     Dates: start: 20080213, end: 20080324
  2. AZITHROMYCIN [Suspect]
     Indication: LYME DISEASE
     Dosage: 500 MG ONCE PER DAY PO
     Route: 048
     Dates: start: 20080213, end: 20080323

REACTIONS (6)
  - HYPERAESTHESIA [None]
  - HYPERSENSITIVITY [None]
  - INSOMNIA [None]
  - NO THERAPEUTIC RESPONSE [None]
  - PRURITUS [None]
  - SLEEP DISORDER [None]
